FAERS Safety Report 16464171 (Version 1)
Quarter: 2019Q3

REPORT INFORMATION
  Report Type: Spontaneous
  Country: US (occurrence: US)
  Receive Date: 20190620
  Receipt Date: 20190620
  Transmission Date: 20191004
  Serious: Yes (Disabling)
  Sender: FDA-Public Use
  Company Number: None

PATIENT
  Age: 86 Year
  Sex: Female
  Weight: 58.5 kg

DRUGS (6)
  1. SOMADERM GEL [Suspect]
     Active Substance: HOMEOPATHICS
     Indication: ARTHRALGIA
     Dosage: ?          QUANTITY:2 DROP(S);?
     Route: 061
     Dates: start: 20180415, end: 20181110
  2. SOMADERM GEL [Suspect]
     Active Substance: HOMEOPATHICS
     Indication: INSOMNIA
     Dosage: ?          QUANTITY:2 DROP(S);?
     Route: 061
     Dates: start: 20180415, end: 20181110
  3. DAILY VITAMIN [Concomitant]
     Active Substance: VITAMINS
  4. AREDS [Concomitant]
     Active Substance: MINERALS\VITAMINS
  5. SYNTHROID [Concomitant]
     Active Substance: LEVOTHYROXINE SODIUM
  6. OMEGA 3 [Concomitant]
     Active Substance: OMEGA-3 FATTY ACIDS

REACTIONS (5)
  - Hot flush [None]
  - Anxiety [None]
  - Product quality issue [None]
  - Headache [None]
  - Tachycardia [None]

NARRATIVE: CASE EVENT DATE: 20190225
